FAERS Safety Report 16056346 (Version 1)
Quarter: 2019Q2

REPORT INFORMATION
  Report Type: Spontaneous
  Country: US (occurrence: US)
  Receive Date: 20190308
  Receipt Date: 20190308
  Transmission Date: 20190711
  Serious: Yes (Disabling)
  Sender: FDA-Public Use
  Company Number: None

PATIENT
  Age: 60 Year
  Sex: Female
  Weight: 63 kg

DRUGS (1)
  1. LEVAQUIN [Suspect]
     Active Substance: LEVOFLOXACIN

REACTIONS (11)
  - Urinary tract infection [None]
  - Impaired work ability [None]
  - Spinal disorder [None]
  - Inadequate analgesia [None]
  - Blood disorder [None]
  - Loss of personal independence in daily activities [None]
  - Ligament pain [None]
  - Arthralgia [None]
  - Haematuria [None]
  - Contraindicated product prescribed [None]
  - Immune system disorder [None]

NARRATIVE: CASE EVENT DATE: 20140101
